FAERS Safety Report 7495799-4 (Version None)
Quarter: 2011Q2

REPORT INFORMATION
  Report Type: 
  Country: None (occurrence: None)
  Receive Date: 20110523
  Receipt Date: 20110511
  Transmission Date: 20111010
  Serious: Yes (Hospitalization)
  Sender: FDA-Public Use
  Company Number: CA-ELI_LILLY_AND_COMPANY-CA201105003016

PATIENT
  Sex: Female

DRUGS (12)
  1. ZYPREXA ZYDIS [Suspect]
     Dosage: 10 MG, PRN
  2. ZYPREXA [Suspect]
     Dosage: 7.5 MG, EACH EVENING
  3. ZYPREXA [Suspect]
     Dosage: 10 MG, PRN
  4. LITHIUM CARBONATE [Concomitant]
  5. WELLBUTRIN [Concomitant]
  6. RESTORIL [Concomitant]
  7. ZYPREXA [Suspect]
     Indication: BIPOLAR DISORDER
     Dosage: 5 MG, EACH EVENING
     Dates: start: 20000222
  8. ZYPREXA [Suspect]
     Dosage: 15 MG, EACH EVENING
  9. CELEXA [Concomitant]
  10. ZYPREXA [Suspect]
     Dosage: 10 MG, EACH EVENING
  11. ZYPREXA ZYDIS [Suspect]
     Dosage: 5 MG, BID
  12. LORAZEPAM [Concomitant]

REACTIONS (6)
  - MYOCARDIAL INFARCTION [None]
  - HYPERTENSION [None]
  - DYSLIPIDAEMIA [None]
  - WEIGHT INCREASED [None]
  - DIABETES MELLITUS [None]
  - LEFT VENTRICULAR DYSFUNCTION [None]
